FAERS Safety Report 8010683-5 (Version None)
Quarter: 2011Q4

REPORT INFORMATION
  Report Type: 
  Country: None (occurrence: None)
  Receive Date: 20111228
  Receipt Date: 20111219
  Transmission Date: 20120403
  Serious: Yes (Other)
  Sender: FDA-Public Use
  Company Number: CA-JNJFOC-20111210493

PATIENT
  Sex: Female
  Weight: 145 kg

DRUGS (6)
  1. REMICADE [Suspect]
     Indication: CROHN'S DISEASE
     Route: 042
  2. REMICADE [Suspect]
     Route: 042
     Dates: start: 20111219
  3. CELEXA [Concomitant]
  4. ASACOL [Concomitant]
  5. AZATHIOPRINE [Concomitant]
  6. PREDNISONE TAB [Concomitant]

REACTIONS (2)
  - UNRESPONSIVE TO STIMULI [None]
  - INFUSION RELATED REACTION [None]
